FAERS Safety Report 14851836 (Version 1)
Quarter: 2018Q2

REPORT INFORMATION
  Report Type: Spontaneous
  Country: US (occurrence: US)
  Receive Date: 20180420
  Receipt Date: 20180420
  Transmission Date: 20180711
  Serious: Yes (Other)
  Sender: FDA-Public Use
  Company Number: None

PATIENT
  Age: 32 Year
  Sex: Female
  Weight: 76.5 kg

DRUGS (1)
  1. VIMPAT [Suspect]
     Active Substance: LACOSAMIDE
     Indication: SEIZURE
     Dosage: ?          QUANTITY:1 CAPSULE(S);?
     Route: 048
     Dates: start: 20171201, end: 20171205

REACTIONS (9)
  - Seizure [None]
  - Tremor [None]
  - Hypertension [None]
  - Heart rate increased [None]
  - Dizziness [None]
  - Feeling abnormal [None]
  - Vomiting [None]
  - Mood swings [None]
  - Nausea [None]

NARRATIVE: CASE EVENT DATE: 20171205
